FAERS Safety Report 23326102 (Version 1)
Quarter: 2023Q4

REPORT INFORMATION
  Report Type: Spontaneous
  Country: SI (occurrence: SI)
  Receive Date: 20231221
  Receipt Date: 20231221
  Transmission Date: 20240109
  Serious: Yes (Other)
  Sender: FDA-Public Use
  Company Number: SI-MENARINI-SI-MEN-091807

PATIENT
  Age: 70 Year
  Sex: Female
  Weight: 59 kg

DRUGS (6)
  1. EDOXABAN TOSYLATE [Suspect]
     Active Substance: EDOXABAN TOSYLATE
     Indication: Atrial fibrillation
     Dosage: 30 MG, QD
     Route: 065
     Dates: start: 20230106, end: 202311
  2. CHOLECALCIFEROL [Concomitant]
     Active Substance: CHOLECALCIFEROL
     Indication: Osteoporosis
     Dosage: 5 DROP, QD
     Route: 065
     Dates: start: 2017
  3. NAPROXEN SODIUM [Concomitant]
     Active Substance: NAPROXEN\NAPROXEN SODIUM
     Indication: Pain
     Dosage: UNK (3-5 DAYS AT SEVERE PAIN)
     Route: 065
     Dates: start: 20230619, end: 202312
  4. ALGOMINAL [Concomitant]
     Indication: Pain
     Dosage: 1-2 TABLET, QD
     Route: 065
     Dates: start: 20230412, end: 202312
  5. KALCIJEV KARBONAT [Concomitant]
     Indication: Product used for unknown indication
     Dosage: UNK
     Route: 065
     Dates: start: 2017
  6. BONVIVA [Concomitant]
     Active Substance: IBANDRONATE SODIUM
     Indication: Osteoporosis
     Dosage: 150 MG, ONCE EVERY 1 MO
     Route: 065
     Dates: start: 2017

REACTIONS (4)
  - Malaise [Recovered/Resolved]
  - Visual impairment [Recovered/Resolved]
  - Amaurosis fugax [Recovered/Resolved]
  - Product use in unapproved indication [Recovered/Resolved]

NARRATIVE: CASE EVENT DATE: 20230101
